FAERS Safety Report 11796573 (Version 10)
Quarter: 2021Q2

REPORT INFORMATION
  Report Type: Spontaneous
  Country: US (occurrence: US)
  Receive Date: 20151203
  Receipt Date: 20210405
  Transmission Date: 20210716
  Serious: Yes (Hospitalization, Other)
  Sender: FDA-Public Use
  Company Number: PHEH2015US025090

PATIENT
  Sex: Female

DRUGS (2)
  1. ZOFRAN [Suspect]
     Active Substance: ONDANSETRON HYDROCHLORIDE
     Indication: MORNING SICKNESS
     Dosage: 4 MG, UNK
     Route: 048
     Dates: end: 20070220
  2. ZOFRAN ODT [Suspect]
     Active Substance: ONDANSETRON HYDROCHLORIDE
     Indication: PRODUCT USED FOR UNKNOWN INDICATION
     Route: 048

REACTIONS (33)
  - Hypertension [Unknown]
  - Cerebrovascular accident [Unknown]
  - Renal failure [Unknown]
  - Wound infection [Unknown]
  - Chills [Unknown]
  - Product use in unapproved indication [Unknown]
  - Head injury [Unknown]
  - Nephrolithiasis [Unknown]
  - Cellulitis orbital [Unknown]
  - Ocular hyperaemia [Unknown]
  - Obesity [Unknown]
  - Eye pruritus [Unknown]
  - Photophobia [Unknown]
  - Pustule [Unknown]
  - Product use issue [Unknown]
  - Anxiety [Unknown]
  - Pyrexia [Unknown]
  - Ectopic pregnancy [Unknown]
  - Superimposed pre-eclampsia [Unknown]
  - Maternal exposure during pregnancy [Unknown]
  - Body tinea [Unknown]
  - Gestational hypertension [Unknown]
  - Eye pain [Unknown]
  - Vaginal haemorrhage [Unknown]
  - Cellulitis staphylococcal [Unknown]
  - Pain [Unknown]
  - Otorrhoea [Unknown]
  - Metabolic syndrome [Unknown]
  - Dizziness [Unknown]
  - Eye swelling [Unknown]
  - Emotional distress [Unknown]
  - Otosalpingitis [Unknown]
  - Breast tenderness [Unknown]
